FAERS Safety Report 24177864 (Version 1)
Quarter: 2024Q3

REPORT INFORMATION
  Report Type: Spontaneous
  Country: US (occurrence: US)
  Receive Date: 20240806
  Receipt Date: 20240806
  Transmission Date: 20241016
  Serious: No
  Sender: AMNEAL
  Company Number: US-AMNEAL PHARMACEUTICALS-2023-AMRX-04625

PATIENT

DRUGS (1)
  1. TRAMADOL HYDROCHLORIDE [Suspect]
     Active Substance: TRAMADOL HYDROCHLORIDE
     Indication: Small fibre neuropathy
     Dosage: 50 MG
     Route: 065

REACTIONS (5)
  - Feeling abnormal [Unknown]
  - Headache [Unknown]
  - Abdominal pain upper [Unknown]
  - Drug ineffective [Unknown]
  - Product substitution issue [Unknown]
